FAERS Safety Report 4769068-7 (Version None)
Quarter: 2005Q3

REPORT INFORMATION
  Report Type: 
  Country: None (occurrence: None)
  Receive Date: 20050914
  Receipt Date: 20050901
  Transmission Date: 20060218
  Serious: Yes (Other)
  Sender: FDA-Public Use
  Company Number: 2005123622

PATIENT
  Sex: Male
  Weight: 92.0802 kg

DRUGS (1)
  1. UNISOM SLEEPGELS (DIPHENHYDRAMINE) [Suspect]
     Indication: INSOMNIA
     Dosage: 1 SLEEPGEL NIGHTLY,ORAL
     Route: 048
     Dates: start: 19940101

REACTIONS (2)
  - AMNESIA [None]
  - HYPOAESTHESIA [None]
